FAERS Safety Report 8811190 (Version 3)
Quarter: 2013Q1

REPORT INFORMATION
  Report Type: Spontaneous
  Country: US (occurrence: None)
  Receive Date: 20120921
  Receipt Date: 20121015
  Transmission Date: 20140127
  Serious: Yes (Hospitalization, Other)
  Sender: FDA-Public Use
  Company Number: ACO_31966_2012

PATIENT
  Age: 61 Year
  Sex: Female
  Weight: 79.4 kg

DRUGS (7)
  1. AMPYRA [Suspect]
     Indication: MULTIPLE SCLEROSIS
     Route: 048
     Dates: start: 201007, end: 20120905
  2. BETASERON [Concomitant]
     Route: 048
     Dates: start: 20100701, end: 20120905
  3. BACLOFEN (BACLOFEN) [Concomitant]
  4. FLUOXETINE (FLUOXETINE HYDROCHLORIDE) [Concomitant]
  5. TIZANIDINE (TIZANIDINE HYDROCHLORIDE) [Concomitant]
  6. COPAXONE (GLATIRAMER ACETATE) [Concomitant]
  7. MUSCLE RELAXANTS [Concomitant]

REACTIONS (4)
  - Convulsion [None]
  - Nephrolithiasis [None]
  - Urinary tract infection [None]
  - Nausea [None]
